FAERS Safety Report 11974855 (Version 1)
Quarter: 2016Q1

REPORT INFORMATION
  Report Type: Spontaneous
  Country: US (occurrence: US)
  Receive Date: 20160128
  Receipt Date: 20160128
  Transmission Date: 20160526
  Serious: No
  Sender: FDA-Public Use
  Company Number: US-OREXO US, INC.-ORE201510-000204

PATIENT
  Sex: Female

DRUGS (3)
  1. ADVIL [Concomitant]
     Active Substance: IBUPROFEN
     Indication: PAIN
  2. ZUBSOLV [Suspect]
     Active Substance: BUPRENORPHINE HYDROCHLORIDE\NALOXONE HYDROCHLORIDE
     Indication: BACK PAIN
     Dosage: 5.7/1.4 MG
  3. ALEVE [Concomitant]
     Active Substance: NAPROXEN SODIUM
     Indication: PAIN

REACTIONS (1)
  - Off label use [Unknown]
